FAERS Safety Report 8606790 (Version 4)
Quarter: 2014Q2

REPORT INFORMATION
  Report Type: Spontaneous
  Country: US (occurrence: US)
  Receive Date: 20120611
  Receipt Date: 20140527
  Transmission Date: 20141212
  Serious: No
  Sender: FDA-Public Use
  Company Number: US-ASTRAZENECA-2012SE35840

PATIENT
  Age: 51 Year
  Sex: Female
  Weight: 77.1 kg

DRUGS (14)
  1. NEXIUM [Suspect]
     Indication: DYSPEPSIA
     Route: 048
     Dates: start: 1999
  2. NEXIUM [Suspect]
     Indication: DYSPEPSIA
     Route: 048
     Dates: start: 20080122
  3. NEXIUM [Suspect]
     Indication: DYSPEPSIA
     Route: 048
     Dates: start: 20100424
  4. CITRACAL [Concomitant]
     Indication: BONE DISORDER
  5. VITAMIN D [Concomitant]
     Indication: BONE DISORDER
  6. STRONTIUM [Concomitant]
     Indication: BONE DISORDER
  7. VITAMIN E [Concomitant]
  8. CENTRUM [Concomitant]
  9. METOPROLOL TARTRATE [Concomitant]
     Indication: HYPERTENSION
     Dates: start: 20120213
  10. HYDRODIURIL [Concomitant]
     Indication: BLOOD PRESSURE ABNORMAL
  11. MICARDIS [Concomitant]
     Indication: BLOOD PRESSURE ABNORMAL
     Dates: start: 20120208
  12. NIFEDIPINE [Concomitant]
     Indication: BLOOD PRESSURE ABNORMAL
     Dates: start: 20120110
  13. SUCRALFATE [Concomitant]
     Dates: start: 20120110
  14. CYCLOBENZAPR [Concomitant]
     Dates: start: 20120116

REACTIONS (6)
  - Osteoporosis [Unknown]
  - Bone disorder [Unknown]
  - Multiple fractures [Unknown]
  - Arthritis [Unknown]
  - Vitamin D deficiency [Unknown]
  - Osteopenia [Unknown]
